FAERS Safety Report 25202276 (Version 2)
Quarter: 2025Q2

REPORT INFORMATION
  Report Type: Report from Study
  Country: IN (occurrence: IN)
  Receive Date: 20250416
  Receipt Date: 20250502
  Transmission Date: 20250716
  Serious: Yes (Hospitalization, Other)
  Sender: CIPLA
  Company Number: IN-CIPLA LTD.-2025IN04300

PATIENT

DRUGS (5)
  1. TORSEMIDE [Suspect]
     Active Substance: TORSEMIDE
     Indication: Diuretic therapy
     Route: 048
     Dates: start: 2024
  2. METOPROLOL SUCCINATE [Suspect]
     Active Substance: METOPROLOL SUCCINATE
     Indication: Blood pressure abnormal
     Route: 048
     Dates: start: 2024
  3. CLAVIX GOLD [Concomitant]
     Indication: Product used for unknown indication
     Route: 065
  4. PANTOMAG [Concomitant]
     Indication: Product used for unknown indication
     Route: 065
  5. LIPICURE GOLD [Concomitant]
     Indication: Product used for unknown indication
     Route: 065

REACTIONS (2)
  - Coronary artery disease [Not Recovered/Not Resolved]
  - Dyspnoea [Not Recovered/Not Resolved]

NARRATIVE: CASE EVENT DATE: 20250201
